FAERS Safety Report 22633399 (Version 1)
Quarter: 2023Q2

REPORT INFORMATION
  Report Type: Other
  Country: US (occurrence: None)
  Receive Date: 20230623
  Receipt Date: 20230623
  Transmission Date: 20230722
  Serious: Yes (Other)
  Sender: FDA-Public Use
  Company Number: US-ROCHE-3367620

PATIENT
  Age: 39 Year
  Sex: Female

DRUGS (1)
  1. OCREVUS [Suspect]
     Active Substance: OCRELIZUMAB
     Indication: Relapsing-remitting multiple sclerosis
     Dosage: YES
     Route: 042

REACTIONS (6)
  - Sensation of foreign body [Recovered/Resolved]
  - Pruritus [Recovered/Resolved]
  - Trigeminal neuralgia [Recovering/Resolving]
  - Guillain-Barre syndrome [Not Recovered/Not Resolved]
  - Trigeminal neuralgia [Recovering/Resolving]
  - Hypertension [Not Recovered/Not Resolved]

NARRATIVE: CASE EVENT DATE: 20230106
